FAERS Safety Report 6267343-0 (Version None)
Quarter: 2009Q3

REPORT INFORMATION
  Report Type: 
  Country: None (occurrence: None)
  Receive Date: 20090714
  Receipt Date: 20090707
  Transmission Date: 20100115
  Serious: Yes (Other)
  Sender: FDA-Public Use
  Company Number: A0795745A

PATIENT
  Age: 50 Year
  Sex: Male

DRUGS (2)
  1. SEREVENT [Suspect]
     Indication: ASTHMA
     Dosage: 1PUFF TWICE PER DAY
     Route: 055
     Dates: start: 19940101
  2. PROVENTIL-HFA [Suspect]
     Indication: ASTHMA
     Route: 065

REACTIONS (3)
  - ANXIETY [None]
  - ASTHMA [None]
  - WEIGHT DECREASED [None]
